FAERS Safety Report 25428181 (Version 1)
Quarter: 2025Q2

REPORT INFORMATION
  Report Type: Spontaneous
  Country: US (occurrence: None)
  Receive Date: 20250612
  Receipt Date: 20250612
  Transmission Date: 20250716
  Serious: No
  Sender: FDA-CTU
  Company Number: None

PATIENT
  Age: 47 Year
  Sex: Male

DRUGS (4)
  1. STELARA [Suspect]
     Active Substance: USTEKINUMAB
     Indication: Crohn^s disease
     Dates: start: 20250221
  2. CIPROFLOXACN TAB [Concomitant]
  3. METRONIDAZOL TAB [Concomitant]
  4. PREDNISONE [Concomitant]
     Active Substance: PREDNISONE

REACTIONS (3)
  - Crohn^s disease [None]
  - Quality of life decreased [None]
  - Intentional dose omission [None]

NARRATIVE: CASE EVENT DATE: 20250505
